FAERS Safety Report 4317973-8 (Version None)
Quarter: 2004Q1

REPORT INFORMATION
  Report Type: 
  Country: None (occurrence: None)
  Receive Date: 20040316
  Receipt Date: 20040311
  Transmission Date: 20041129
  Serious: Yes (Death, Hospitalization)
  Sender: FDA-Public Use
  Company Number: FR-GLAXOSMITHKLINE-B0326380A

PATIENT
  Age: 81 Year
  Sex: Male
  Weight: 85 kg

DRUGS (11)
  1. AUGMENTIN [Suspect]
     Route: 048
  2. CIPROFLOXACIN HCL [Suspect]
     Dosage: 375MG TWICE PER DAY
     Route: 048
     Dates: start: 20040201, end: 20040220
  3. CELEBREX [Suspect]
     Dosage: 1UNIT PER DAY
     Route: 048
     Dates: start: 20030101, end: 20040128
  4. LASIX [Suspect]
     Dosage: 80MG PER DAY
     Route: 048
     Dates: start: 20030101
  5. LASIX [Suspect]
     Route: 042
  6. TRIATEC [Suspect]
     Dosage: 5MG PER DAY
     Route: 048
     Dates: start: 20030101, end: 20040201
  7. NOZINAN [Concomitant]
     Route: 065
  8. ROCEPHIN [Concomitant]
     Route: 065
  9. CORTICOID [Concomitant]
     Route: 065
  10. SOLUPRED 20 [Concomitant]
     Route: 065
  11. NITRATES (UNSPECIFIED) [Concomitant]
     Route: 065

REACTIONS (8)
  - ANURIA [None]
  - DEHYDRATION [None]
  - HYPOKALAEMIA [None]
  - HYPONATRAEMIA [None]
  - HYPOTENSION [None]
  - RENAL FAILURE ACUTE [None]
  - SOMNOLENCE [None]
  - WEIGHT DECREASED [None]
